FAERS Safety Report 7824393-8 (Version None)
Quarter: 2011Q4

REPORT INFORMATION
  Report Type: 
  Country: None (occurrence: None)
  Receive Date: 20111019
  Receipt Date: 20111007
  Transmission Date: 20120403
  Serious: Yes (Other)
  Sender: FDA-Public Use
  Company Number: US-BAYER-2011-098003

PATIENT
  Age: 89 Year
  Sex: Female
  Weight: 78.005 kg

DRUGS (4)
  1. NAPROXEN (ALEVE) [Suspect]
     Dosage: 220 MG, BID
     Route: 048
     Dates: start: 20110905
  2. EXELON [Concomitant]
  3. NAPROXEN (ALEVE) [Suspect]
     Indication: ANALGESIC THERAPY
     Dosage: 220 MG, BID
     Route: 048
     Dates: start: 20110601, end: 20110101
  4. RIVASTIGMINE TARTRATE [Concomitant]
     Dosage: 1.5 MG, UNK

REACTIONS (1)
  - BLOOD URINE PRESENT [None]
